FAERS Safety Report 8033036 (Version 2)
Quarter: 2012Q4

REPORT INFORMATION
  Report Type: Spontaneous
  Country: US (occurrence: None)
  Receive Date: 20110627
  Receipt Date: 20121129
  Transmission Date: 20130627
  Serious: Yes (Other)
  Sender: FDA-Public Use
  Company Number: JPI-P-015502

PATIENT
  Age: 33 Year
  Sex: Male
  Weight: 68.04 kg

DRUGS (4)
  1. XYREM [Suspect]
     Indication: SLEEP DISORDER
     Dosage: ORAL; 6 GM (3 GM, 2 IN 1 D), ORAL
     Route: 048
     Dates: start: 20050603
  2. XYREM [Suspect]
     Indication: SLEEP DISORDER
     Dosage: ORAL; 6 GM (3 GM, 2 IN 1 D), ORAL
     Route: 048
     Dates: start: 20080202
  3. XYREM [Suspect]
     Indication: SLEEP DISORDER
     Dosage: 4.5 gm (2.25 gm, 3 in 1 d), oral
  4. XYREM [Suspect]
     Indication: SLEEP DISORDER
     Dosage: 6 GM (3 GM, 2 IN 1 D), ORAL

REACTIONS (4)
  - Product taste abnormal [None]
  - Nephrolithiasis [None]
  - Oesophageal spasm [None]
  - Chondropathy [None]
